FAERS Safety Report 19826700 (Version 1)
Quarter: 2021Q3

REPORT INFORMATION
  Report Type: Spontaneous
  Country: US (occurrence: US)
  Receive Date: 20210913
  Receipt Date: 20210913
  Transmission Date: 20211014
  Serious: No
  Sender: FDA-Public Use
  Company Number: US-BEH-2021135751

PATIENT
  Sex: Female

DRUGS (3)
  1. ZEMAIRA [Suspect]
     Active Substance: .ALPHA.1-PROTEINASE INHIBITOR HUMAN
     Dosage: UNK
     Route: 065
     Dates: start: 20210122
  2. ZEMAIRA [Suspect]
     Active Substance: .ALPHA.1-PROTEINASE INHIBITOR HUMAN
     Dosage: UNK
     Route: 065
     Dates: start: 20210125
  3. ZEMAIRA [Suspect]
     Active Substance: .ALPHA.1-PROTEINASE INHIBITOR HUMAN
     Dosage: UNK
     Route: 065
     Dates: start: 20210128

REACTIONS (1)
  - Atrial tachycardia [Unknown]
